FAERS Safety Report 5323935-4 (Version None)
Quarter: 2007Q2

REPORT INFORMATION
  Report Type: 
  Country: None (occurrence: None)
  Receive Date: 20070514
  Receipt Date: 20070509
  Transmission Date: 20071010
  Serious: Yes (Hospitalization)
  Sender: FDA-Public Use
  Company Number: FR-ASTRAZENECA-2007CG00715

PATIENT
  Age: 43 Year
  Sex: Female

DRUGS (3)
  1. ZOMIG [Suspect]
     Indication: MIGRAINE
     Route: 048
  2. IMIGRANE [Suspect]
     Indication: MIGRAINE
     Route: 045
     Dates: start: 20060213
  3. RIVOTRIL [Suspect]
     Indication: MIGRAINE
     Route: 048
     Dates: start: 20060213

REACTIONS (3)
  - ARTERY DISSECTION [None]
  - BACK PAIN [None]
  - MIGRAINE [None]
